FAERS Safety Report 18503937 (Version 3)
Quarter: 2020Q4

REPORT INFORMATION
  Report Type: Spontaneous
  Country: CH (occurrence: CH)
  Receive Date: 20201113
  Receipt Date: 20201228
  Transmission Date: 20210114
  Serious: Yes (Other)
  Sender: FDA-Public Use
  Company Number: CH-ASTRAZENECA-2020SF46208

PATIENT
  Age: 21330 Day
  Sex: Female
  Weight: 70 kg

DRUGS (5)
  1. FASENRA [Suspect]
     Active Substance: BENRALIZUMAB
     Indication: ASTHMA
     Dosage: 40.0MG UNKNOWN
     Route: 058
     Dates: start: 201907, end: 20200922
  2. VENTOLIN [Concomitant]
     Active Substance: ALBUTEROL SULFATE
     Indication: ASTHMA
     Dosage: 200 MCG 6X/D
     Route: 055
     Dates: start: 2018, end: 2019
  3. ALVESCO [Concomitant]
     Active Substance: CICLESONIDE
     Indication: ASTHMA
     Dosage: 160 BID
     Route: 055
     Dates: start: 2018, end: 2020
  4. PULMICORT TURBUHALER [Concomitant]
     Active Substance: BUDESONIDE
     Indication: ASTHMA
     Dosage: 200 BID
     Route: 055
     Dates: start: 2020
  5. ATROVENT [Concomitant]
     Active Substance: IPRATROPIUM BROMIDE
     Indication: ASTHMA
     Dosage: 250 MCG 6X/D
     Route: 055
     Dates: start: 2018, end: 2019

REACTIONS (9)
  - Urticaria [Unknown]
  - Tachycardia [Recovered/Resolved]
  - Vertigo [Recovered/Resolved]
  - Dysaesthesia [Recovered/Resolved]
  - Discomfort [Unknown]
  - Tachyarrhythmia [Recovered/Resolved]
  - Extrasystoles [Unknown]
  - Hypersensitivity [Unknown]
  - Hypotension [Recovered/Resolved]

NARRATIVE: CASE EVENT DATE: 20190830
